FAERS Safety Report 18354210 (Version 1)
Quarter: 2020Q4

REPORT INFORMATION
  Report Type: Spontaneous
  Country: US (occurrence: US)
  Receive Date: 20201006
  Receipt Date: 20201006
  Transmission Date: 20210114
  Serious: Yes (Hospitalization)
  Sender: FDA-Public Use
  Company Number: None

PATIENT
  Age: 72 Year
  Sex: Male
  Weight: 107 kg

DRUGS (2)
  1. FLUTICASONE (FLUTICASONE PROPIONATE 50MCG/SPRAY, SOLN, NASAL, 9.9GM) [Suspect]
     Active Substance: FLUTICASONE PROPIONATE
     Indication: RHINITIS ALLERGIC
     Dosage: ?          OTHER DOSE:1 SPRAY EACH NOSTR;?
     Route: 045
     Dates: start: 20151008, end: 20200603
  2. WARFARIN (WARFARIN NA (EXELAN) 5MG TAB) [Suspect]
     Active Substance: WARFARIN SODIUM
     Indication: ATRIAL FIBRILLATION

REACTIONS (2)
  - Epistaxis [None]
  - Haematochezia [None]

NARRATIVE: CASE EVENT DATE: 20200602
